FAERS Safety Report 9269948 (Version 3)
Quarter: 2013Q2

REPORT INFORMATION
  Report Type: Spontaneous
  Country: US (occurrence: US)
  Receive Date: 20130503
  Receipt Date: 20130604
  Transmission Date: 20140414
  Serious: Yes (Hospitalization)
  Sender: FDA-Public Use
  Company Number: US-GILEAD-2013-0074568

PATIENT
  Age: 19 Year
  Sex: Female

DRUGS (5)
  1. LETAIRIS [Suspect]
     Indication: PULMONARY HYPERTENSION
     Dosage: 10 MG, QD
     Dates: start: 201111
  2. LETAIRIS [Suspect]
     Indication: PATENT DUCTUS ARTERIOSUS
  3. LETAIRIS [Suspect]
     Indication: PULMONARY ARTERIAL HYPERTENSION
  4. REMODULIN [Concomitant]
     Indication: PULMONARY HYPERTENSION
     Dosage: 180 NG, QD
     Dates: start: 201107
  5. REVATIO [Concomitant]
     Indication: PULMONARY HYPERTENSION
     Dosage: 20 MG, TID
     Dates: start: 201111

REACTIONS (1)
  - Device damage [Recovered/Resolved]
